FAERS Safety Report 9678031 (Version 1)
Quarter: 2013Q4

REPORT INFORMATION
  Report Type: Spontaneous
  Country: GB (occurrence: GB)
  Receive Date: 20131108
  Receipt Date: 20131108
  Transmission Date: 20140711
  Serious: Yes (Hospitalization)
  Sender: FDA-Public Use
  Company Number: GB-TEVA-441776ISR

PATIENT
  Age: 48 Year
  Sex: Male

DRUGS (1)
  1. TRIMETHOPRIM [Suspect]
     Indication: URINARY TRACT INFECTION
     Route: 048

REACTIONS (3)
  - Immune thrombocytopenic purpura [Recovered/Resolved]
  - Haematuria [Unknown]
  - Urinary tract infection [Unknown]
